FAERS Safety Report 8878049 (Version 1)
Quarter: 2012Q4

REPORT INFORMATION
  Report Type: 
  Country: US (occurrence: US)
  Receive Date: 20121025
  Receipt Date: 20121025
  Transmission Date: 20130627
  Serious: No
  Sender: FDA-Public Use
  Company Number: US-AMGEN-USASP2012022477

PATIENT
  Age: 52 Year
  Sex: Female
  Weight: 88.89 kg

DRUGS (8)
  1. ENBREL [Suspect]
     Indication: PRODUCT USED FOR UNKNOWN INDICATION
     Dosage: 50 mg, qwk
     Route: 058
     Dates: start: 2008
  2. LANTUS [Concomitant]
     Dosage: UNK
  3. NOVOLOG MIX [Concomitant]
     Dosage: UNK
  4. METFORMIN [Concomitant]
     Dosage: 850 mg, UNK
  5. ENALAPRIL [Concomitant]
     Dosage: 5 mg, UNK
  6. IRON [Concomitant]
     Dosage: 25 mg, UNK
  7. CALCIUM [Concomitant]
     Dosage: 500 mg, UNK
  8. CITALOPRAM [Concomitant]
     Dosage: 20 mg, UNK

REACTIONS (1)
  - Injection site pain [Unknown]
